FAERS Safety Report 24724029 (Version 1)
Quarter: 2024Q4

REPORT INFORMATION
  Report Type: Spontaneous
  Country: US (occurrence: US)
  Receive Date: 20241211
  Receipt Date: 20241211
  Transmission Date: 20250115
  Serious: No
  Sender: ALEXION PHARMACEUTICALS
  Company Number: US-AstraZeneca-CH-00766438AP

PATIENT

DRUGS (4)
  1. BREZTRI [Suspect]
     Active Substance: BUDESONIDE\FORMOTEROL\GLYCOPYRROLATE
     Dosage: 2 PUFFS AT NIGHT
     Route: 065
  2. BREZTRI [Suspect]
     Active Substance: BUDESONIDE\FORMOTEROL\GLYCOPYRROLATE
     Dosage: 2 PUFFS AT NIGHT
     Route: 065
  3. BREZTRI [Suspect]
     Active Substance: BUDESONIDE\FORMOTEROL\GLYCOPYRROLATE
     Dosage: 2 PUFFS AT NIGHT
     Route: 065
  4. BREZTRI [Suspect]
     Active Substance: BUDESONIDE\FORMOTEROL\GLYCOPYRROLATE
     Dosage: 2 PUFFS AT NIGHT
     Route: 065

REACTIONS (5)
  - Hypoacusis [Unknown]
  - Sight disability [Unknown]
  - Device use issue [Unknown]
  - Product dose omission issue [Unknown]
  - Device malfunction [Unknown]
